FAERS Safety Report 10216969 (Version 1)
Quarter: 2014Q2

REPORT INFORMATION
  Report Type: Report from Study
  Country: FR (occurrence: FR)
  Receive Date: 20140604
  Receipt Date: 20140604
  Transmission Date: 20141212
  Serious: Yes (Other)
  Sender: FDA-Public Use
  Company Number: FR-GLAXOSMITHKLINE-B0840526C

PATIENT
  Age: 52 Year
  Sex: Female

DRUGS (3)
  1. PAZOPANIB [Suspect]
     Indication: SARCOMA
     Dosage: 46000MG CUMULATIVE DOSE
     Route: 048
     Dates: start: 20120713, end: 20120924
  2. GEMCITABINE [Suspect]
     Indication: SARCOMA
     Dosage: 13669.7MG CUMULATIVE DOSE
     Route: 042
     Dates: start: 20120713
  3. TRAMADOL [Concomitant]
     Indication: TUMOUR PAIN
     Route: 048
     Dates: start: 201202

REACTIONS (1)
  - Ventricular dysfunction [Not Recovered/Not Resolved]
